FAERS Safety Report 12482942 (Version 2)
Quarter: 2016Q2

REPORT INFORMATION
  Report Type: Report from Study
  Country: CA (occurrence: CA)
  Receive Date: 20160620
  Receipt Date: 20160622
  Transmission Date: 20160815
  Serious: Yes (Other)
  Sender: FDA-Public Use
  Company Number: CA-JNJFOC-20160611892

PATIENT
  Age: 59 Year
  Sex: Male
  Weight: 97.4 kg

DRUGS (1)
  1. REMICADE [Suspect]
     Active Substance: INFLIXIMAB
     Indication: CROHN^S DISEASE
     Route: 042
     Dates: start: 20160304

REACTIONS (5)
  - Pyrexia [Unknown]
  - Dyspnoea exertional [Unknown]
  - Skin exfoliation [Unknown]
  - Productive cough [Unknown]
  - Wheezing [Unknown]

NARRATIVE: CASE EVENT DATE: 201604
